FAERS Safety Report 8889374 (Version 1)
Quarter: 2012Q4

REPORT INFORMATION
  Report Type: Spontaneous
  Country: US (occurrence: None)
  Receive Date: 20121101
  Receipt Date: 20121101
  Transmission Date: 20130627
  Serious: No
  Sender: FDA-Public Use
  Company Number: None

PATIENT

DRUGS (2)
  1. TRIAMTERENE [Suspect]
  2. LOTREL [Suspect]

REACTIONS (7)
  - Dizziness [None]
  - Chills [None]
  - Pollakiuria [None]
  - Fall [None]
  - Contusion [None]
  - Ligament sprain [None]
  - Capsule physical issue [None]
